FAERS Safety Report 10207589 (Version 1)
Quarter: 2014Q2

REPORT INFORMATION
  Report Type: Spontaneous
  Country: US (occurrence: US)
  Receive Date: 20140530
  Receipt Date: 20140530
  Transmission Date: 20141212
  Serious: No
  Sender: FDA-Public Use
  Company Number: US-GLAXOSMITHKLINE-A1051055A

PATIENT
  Sex: Male

DRUGS (3)
  1. VENTOLIN [Suspect]
     Indication: WHEEZING
     Route: 055
  2. ROBITUSSIN [Concomitant]
  3. SUDAFED [Concomitant]

REACTIONS (7)
  - Drug ineffective [Not Recovered/Not Resolved]
  - Cough [Unknown]
  - Rhinorrhoea [Unknown]
  - Dysphonia [Unknown]
  - Malaise [Unknown]
  - Aphonia [Unknown]
  - Productive cough [Unknown]
